FAERS Safety Report 11500774 (Version 1)
Quarter: 2015Q3

REPORT INFORMATION
  Report Type: Spontaneous
  Country: US (occurrence: US)
  Receive Date: 20150903
  Receipt Date: 20150903
  Transmission Date: 20151125
  Serious: No
  Sender: FDA-Public Use
  Company Number: US-ELI_LILLY_AND_COMPANY-US201108002941

PATIENT
  Age: 65 Year
  Sex: Female

DRUGS (1)
  1. CYMBALTA [Suspect]
     Active Substance: DULOXETINE HYDROCHLORIDE
     Indication: ANXIETY
     Dosage: 60 MG, QD
     Dates: start: 20110805

REACTIONS (7)
  - Panic attack [Recovering/Resolving]
  - Nervousness [Not Recovered/Not Resolved]
  - Crying [Unknown]
  - Tension [Not Recovered/Not Resolved]
  - Drug dose omission [Unknown]
  - Expired product administered [Unknown]
  - Anxiety [Not Recovered/Not Resolved]

NARRATIVE: CASE EVENT DATE: 20110805
